FAERS Safety Report 9303740 (Version 1)
Quarter: 2013Q2

REPORT INFORMATION
  Report Type: Spontaneous
  Country: US (occurrence: US)
  Receive Date: 20130522
  Receipt Date: 20130522
  Transmission Date: 20140414
  Serious: No
  Sender: FDA-Public Use
  Company Number: US-PFIZER INC-2013157270

PATIENT
  Sex: Male

DRUGS (1)
  1. LIPITOR [Suspect]
     Indication: BLOOD CHOLESTEROL INCREASED
     Dosage: 40 MG ONCE A DAY
     Route: 048
     Dates: start: 2011

REACTIONS (2)
  - Muscle disorder [Not Recovered/Not Resolved]
  - Tenderness [Not Recovered/Not Resolved]
